FAERS Safety Report 7448376-5 (Version None)
Quarter: 2011Q2

REPORT INFORMATION
  Report Type: 
  Country: None (occurrence: None)
  Receive Date: 20110429
  Receipt Date: 20100517
  Transmission Date: 20111010
  Serious: No
  Sender: FDA-Public Use
  Company Number: US-ASTRAZENECA-2010SE22370

PATIENT
  Age: 68 Year
  Sex: Female
  Weight: 74.8 kg

DRUGS (7)
  1. ZETIA [Concomitant]
  2. AROMASIN [Concomitant]
  3. ATENOLOL [Concomitant]
  4. EYE DROPS [Concomitant]
     Indication: DRY EYE
  5. RED YEAST RICE [Concomitant]
  6. LISINOPRIL AND HYDROCHLOROTHIAZIDE [Concomitant]
  7. NEXIUM [Suspect]
     Indication: BARRETT'S OESOPHAGUS
     Route: 048

REACTIONS (1)
  - PANCREATIC CYST [None]
